FAERS Safety Report 10913629 (Version 2)
Quarter: 2015Q2

REPORT INFORMATION
  Report Type: Spontaneous
  Country: JP (occurrence: JP)
  Receive Date: 20150313
  Receipt Date: 20150410
  Transmission Date: 20150821
  Serious: Yes (Other)
  Sender: FDA-Public Use
  Company Number: JP-ABBVIE-15P-087-1360152-00

PATIENT

DRUGS (7)
  1. MUCODYNE-DS [Concomitant]
     Active Substance: CARBOCYSTEINE
     Indication: NASOPHARYNGITIS
     Dosage: NR, BID
     Route: 048
  2. CLARITH 200 MG TAB [Suspect]
     Active Substance: CLARITHROMYCIN
     Indication: NASOPHARYNGITIS
     Dosage: NR, BID
     Route: 048
  3. ASTOMIN [Concomitant]
     Active Substance: DIMEMORFAN
     Indication: NASOPHARYNGITIS
     Dosage: NR, TWICE DAILY
     Route: 048
  4. PROCATEROL HYDROCHLORIDE [Concomitant]
     Active Substance: PROCATEROL HYDROCHLORIDE
     Indication: NASOPHARYNGITIS
     Dosage: NR, BID
  5. COUGHCODE N [Concomitant]
     Indication: NASOPHARYNGITIS
     Dosage: NR, BID
     Route: 048
  6. BROCIN-CODEINE [Concomitant]
     Indication: NASOPHARYNGITIS
     Dosage: NR, BID
     Route: 048
  7. AMLODIPINE [Concomitant]
     Active Substance: AMLODIPINE BESYLATE
     Indication: HYPERTENSION
     Route: 048

REACTIONS (1)
  - Syncope [Recovered/Resolved]
